FAERS Safety Report 10477539 (Version 2)
Quarter: 2014Q4

REPORT INFORMATION
  Report Type: Report from Study
  Country: NZ (occurrence: NZ)
  Receive Date: 20140926
  Receipt Date: 20141010
  Transmission Date: 20150528
  Serious: Yes (Other)
  Sender: FDA-Public Use
  Company Number: PHHY2014NZ120964

PATIENT
  Age: 52 Year
  Sex: Female

DRUGS (4)
  1. ATENOLOL. [Concomitant]
     Active Substance: ATENOLOL
     Indication: BLOOD PRESSURE
     Dosage: 50 MG, DAILY
     Route: 048
  2. CLONAZEPAM. [Concomitant]
     Active Substance: CLONAZEPAM
     Indication: ANXIETY
     Dosage: 1.5 MG, (0.5 MG MANE AND 1 MG NOCTE), DAILY
     Route: 048
  3. CLOZARIL [Suspect]
     Active Substance: CLOZAPINE
     Indication: SCHIZOPHRENIA
     Dosage: 500 MG, DAILY
     Route: 048
     Dates: start: 20071203, end: 20140724
  4. ROPINIROL [Concomitant]
     Indication: RESTLESS LEGS SYNDROME
     Dosage: 4 MG, (3 MG NOCTE AND 1 MG MANE0
     Route: 048
     Dates: start: 2013

REACTIONS (5)
  - Diarrhoea [Unknown]
  - Vomiting [Unknown]
  - Antipsychotic drug level increased [Recovered/Resolved]
  - Drug ineffective [Unknown]
  - Hallucination, auditory [Not Recovered/Not Resolved]

NARRATIVE: CASE EVENT DATE: 20140724
